FAERS Safety Report 15163502 (Version 1)
Quarter: 2018Q3

REPORT INFORMATION
  Report Type: Spontaneous
  Country: US (occurrence: US)
  Receive Date: 20180719
  Receipt Date: 20180719
  Transmission Date: 20181010
  Serious: No
  Sender: FDA-Public Use
  Company Number: US-JNJFOC-20180704781

PATIENT
  Sex: Female

DRUGS (5)
  1. LANSOPRAZOLE. [Concomitant]
     Active Substance: LANSOPRAZOLE
     Route: 065
  2. CELECOXIB. [Concomitant]
     Active Substance: CELECOXIB
     Route: 065
  3. ATENOLOL. [Concomitant]
     Active Substance: ATENOLOL
     Route: 065
  4. SIMPONI [Suspect]
     Active Substance: GOLIMUMAB
     Indication: RHEUMATOID ARTHRITIS
     Route: 058
     Dates: start: 201605
  5. LATANOPROST. [Concomitant]
     Active Substance: LATANOPROST
     Route: 047

REACTIONS (3)
  - Epistaxis [Not Recovered/Not Resolved]
  - Nasal dryness [Not Recovered/Not Resolved]
  - Seasonal allergy [Not Recovered/Not Resolved]
